FAERS Safety Report 6480735-X (Version None)
Quarter: 2009Q4

REPORT INFORMATION
  Report Type: 
  Country: None (occurrence: None)
  Receive Date: 20091123
  Receipt Date: 20090921
  Transmission Date: 20100525
  Serious: Yes (Hospitalization)
  Sender: FDA-Public Use
  Company Number: 8046305

PATIENT
  Age: 16 Year
  Sex: Female
  Weight: 55.79 kg

DRUGS (9)
  1. CIMZIA [Suspect]
     Indication: CROHN'S DISEASE
     Dosage: 400 MG SC
     Route: 058
     Dates: start: 20090103
  2. CELEXA [Concomitant]
  3. FISH OIL [Concomitant]
  4. IRON SLOW-FE [Concomitant]
  5. ASCORBIC ACID [Concomitant]
  6. VITAMIN D [Concomitant]
  7. CLONOPIN [Concomitant]
  8. VIACTIN [Concomitant]
  9. PREDNISONE [Concomitant]

REACTIONS (5)
  - CROHN'S DISEASE [None]
  - DIARRHOEA [None]
  - DRUG INEFFECTIVE [None]
  - FATIGUE [None]
  - GASTROINTESTINAL INFLAMMATION [None]
